FAERS Safety Report 17281361 (Version 1)
Quarter: 2020Q1

REPORT INFORMATION
  Report Type: Spontaneous
  Country: CN (occurrence: CN)
  Receive Date: 20200117
  Receipt Date: 20200117
  Transmission Date: 20200409
  Serious: Yes (Other)
  Sender: FDA-Public Use
  Company Number: CN-B.I. PHARMACEUTICALS,INC./RIDGEFIELD-2020-BI-001762

PATIENT
  Age: 37 Year
  Sex: Female
  Weight: 60 kg

DRUGS (3)
  1. PULMICORT TURBUHALER [Suspect]
     Active Substance: BUDESONIDE
     Indication: BRONCHITIS
     Dosage: SUSPENSION
     Route: 055
     Dates: start: 20191230, end: 20191230
  2. ATROVENT [Suspect]
     Active Substance: IPRATROPIUM BROMIDE
     Indication: BRONCHITIS
     Dosage: SOLUTION
     Route: 055
     Dates: start: 20191230, end: 20191230
  3. BRICANYL [Suspect]
     Active Substance: TERBUTALINE SULFATE
     Indication: BRONCHITIS
     Dosage: NEBULIZATION SOLUTION
     Route: 055
     Dates: start: 20191230, end: 20191230

REACTIONS (5)
  - Flushing [Recovered/Resolved]
  - Rash [Recovered/Resolved]
  - Hypoaesthesia [Recovered/Resolved]
  - Pruritus [Recovered/Resolved]
  - Tremor [Recovered/Resolved]

NARRATIVE: CASE EVENT DATE: 20191230
